FAERS Safety Report 6711260-6 (Version None)
Quarter: 2010Q2

REPORT INFORMATION
  Report Type: 
  Country: None (occurrence: None)
  Receive Date: 20100505
  Receipt Date: 20100423
  Transmission Date: 20101027
  Serious: Yes (Other)
  Sender: FDA-Public Use
  Company Number: HQWYE999527MAY05

PATIENT
  Sex: Female
  Weight: 62.65 kg

DRUGS (3)
  1. PREMPRO [Suspect]
     Dosage: UNKNOWN
     Dates: start: 19970101, end: 20020101
  2. PROVERA [Suspect]
  3. PREMARIN [Suspect]
     Dosage: UNKNOWN
     Dates: start: 19960101

REACTIONS (6)
  - AMNESIA [None]
  - CEREBROVASCULAR ACCIDENT [None]
  - DIZZINESS [None]
  - HYPERTENSION [None]
  - HYPOAESTHESIA [None]
  - SYSTEMIC LUPUS ERYTHEMATOSUS [None]
